FAERS Safety Report 21679604 (Version 1)
Quarter: 2022Q4

REPORT INFORMATION
  Report Type: Spontaneous
  Country: US (occurrence: US)
  Receive Date: 20221205
  Receipt Date: 20221205
  Transmission Date: 20230113
  Serious: Yes (Other)
  Sender: FDA-Public Use
  Company Number: US-STRIDES ARCOLAB LIMITED-2022SP003427

PATIENT

DRUGS (8)
  1. ACETAZOLAMIDE [Suspect]
     Active Substance: ACETAZOLAMIDE
     Indication: Dyskinesia
     Dosage: UNK
     Route: 065
  2. CLONAZEPAM [Suspect]
     Active Substance: CLONAZEPAM
     Indication: Dyskinesia
     Dosage: UNK
     Route: 065
  3. ETHOSUXIMIDE [Suspect]
     Active Substance: ETHOSUXIMIDE
     Indication: Dyskinesia
     Dosage: UNK
     Route: 065
  4. IMIPRAMINE HYDROCHLORIDE [Suspect]
     Active Substance: IMIPRAMINE HYDROCHLORIDE
     Indication: Dyskinesia
     Dosage: UNK
     Route: 065
  5. LEVETIRACETAM [Suspect]
     Active Substance: LEVETIRACETAM
     Indication: Dyskinesia
     Dosage: UNK
     Route: 065
  6. OXCARBAZEPINE [Suspect]
     Active Substance: OXCARBAZEPINE
     Indication: Dyskinesia
     Dosage: UNK
     Route: 065
  7. ZONISAMIDE [Suspect]
     Active Substance: ZONISAMIDE
     Indication: Dyskinesia
     Dosage: UNK
     Route: 065
  8. MELATONIN [Concomitant]
     Active Substance: MELATONIN
     Indication: Product used for unknown indication
     Dosage: UNK
     Route: 065

REACTIONS (1)
  - Drug ineffective for unapproved indication [Unknown]
